FAERS Safety Report 24623456 (Version 1)
Quarter: 2024Q4

REPORT INFORMATION
  Report Type: Spontaneous
  Country: NL (occurrence: NL)
  Receive Date: 20241115
  Receipt Date: 20241115
  Transmission Date: 20250115
  Serious: Yes (Hospitalization, Other)
  Sender: AUROBINDO
  Company Number: NL-LRB-01011527

PATIENT
  Age: 29 Year
  Sex: Male
  Weight: 66.5 kg

DRUGS (1)
  1. METFORMIN HYDROCHLORIDE [Suspect]
     Active Substance: METFORMIN HYDROCHLORIDE
     Indication: Type 2 diabetes mellitus
     Dosage: 500 MILLIGRAM, TWO TIMES A DAY (500 MG 2 TIMES A DAY)
     Route: 048
     Dates: start: 19850101, end: 20241022

REACTIONS (1)
  - Lactic acidosis [Recovering/Resolving]
